FAERS Safety Report 5818923-5 (Version None)
Quarter: 2008Q3

REPORT INFORMATION
  Report Type: 
  Country: None (occurrence: None)
  Receive Date: 20080717
  Receipt Date: 20080708
  Transmission Date: 20090109
  Serious: Yes (Disabling)
  Sender: FDA-Public Use
  Company Number: GXKR2008HR06384

PATIENT
  Age: 46 Year
  Sex: Female

DRUGS (2)
  1. CITALON (NGX) (CITALOPRAM) FILM-COATED TABLET, 20MG [Suspect]
     Indication: AFFECTIVE DISORDER
     Dosage: 20 MG, QD, ORAL
     Route: 048
     Dates: start: 20070928
  2. DEPAKENE [Concomitant]

REACTIONS (2)
  - HANGOVER [None]
  - NIGHTMARE [None]
